FAERS Safety Report 17756139 (Version 1)
Quarter: 2020Q2

REPORT INFORMATION
  Report Type: Report from Study
  Country: US (occurrence: US)
  Receive Date: 20200507
  Receipt Date: 20200507
  Transmission Date: 20200714
  Serious: Yes (Hospitalization, Other)
  Sender: FDA-Public Use
  Company Number: US-ROCHE-2594075

PATIENT
  Age: 55 Year
  Sex: Male
  Weight: 74.91 kg

DRUGS (6)
  1. ACETAMINOPHEN. [Concomitant]
     Active Substance: ACETAMINOPHEN
     Indication: PAIN
     Dosage: 1.5 PILLS IN THE MORNING, 1 PILL AT NOON, AND 1.5
     Route: 065
     Dates: start: 2005
  2. BACLOFEN. [Concomitant]
     Active Substance: BACLOFEN
     Indication: MUSCLE SPASMS
     Dosage: 1.5 PILLS IN THE MORNING, 1 PILL AT NOON, AND 1.5
     Route: 065
     Dates: start: 2007
  3. LISINOPRIL. [Concomitant]
     Active Substance: LISINOPRIL
     Indication: HYPERTENSION
     Dosage: O
     Route: 065
     Dates: start: 1997
  4. OCREVUS [Suspect]
     Active Substance: OCRELIZUMAB
     Indication: SECONDARY PROGRESSIVE MULTIPLE SCLEROSIS
     Dosage: EVERY 6 MONTHS
     Route: 042
     Dates: start: 20170601
  5. AMPYRA [Suspect]
     Active Substance: DALFAMPRIDINE
     Indication: PRODUCT USED FOR UNKNOWN INDICATION
     Route: 065
     Dates: start: 20200421
  6. PREDNISONE. [Concomitant]
     Active Substance: PREDNISONE
     Indication: INFLAMMATION
     Dosage: ONCE A DAY FOR 7 DAYS
     Route: 065
     Dates: start: 20200427

REACTIONS (9)
  - Diarrhoea [Recovered/Resolved]
  - Urinary tract infection [Recovered/Resolved]
  - Paralysis [Unknown]
  - Multiple sclerosis relapse [Unknown]
  - Pain [Unknown]
  - Ear infection [Not Recovered/Not Resolved]
  - Urticaria [Recovered/Resolved]
  - Snoring [Recovered/Resolved]
  - Pyrexia [Unknown]

NARRATIVE: CASE EVENT DATE: 20170601
